FAERS Safety Report 10733716 (Version 3)
Quarter: 2015Q1

REPORT INFORMATION
  Report Type: Report from Study
  Country: AU (occurrence: AU)
  Receive Date: 20150123
  Receipt Date: 20150331
  Transmission Date: 20150721
  Serious: Yes (Hospitalization, Other)
  Sender: FDA-Public Use
  Company Number: PHHY2015AU008852

PATIENT
  Sex: Female

DRUGS (2)
  1. CLOZARIL [Suspect]
     Active Substance: CLOZAPINE
     Dosage: UNK
     Route: 048
  2. CLOZARIL [Suspect]
     Active Substance: CLOZAPINE
     Indication: SCHIZOPHRENIA
     Dosage: 550 (UNIT UNSPECIFIED)
     Route: 048
     Dates: start: 20050712, end: 20150114

REACTIONS (3)
  - Schizophrenia [Unknown]
  - Paranoia [Recovering/Resolving]
  - Psychotic disorder [Unknown]
